FAERS Safety Report 10361988 (Version 1)
Quarter: 2014Q1

REPORT INFORMATION
  Report Type: Spontaneous
  Country: US (occurrence: None)
  Receive Date: 20140306
  Receipt Date: 20140306
  Transmission Date: 20141002
  Serious: Yes (Other)
  Sender: FDA-Public Use
  Company Number: 163-21880-13074662

PATIENT
  Age: 49 Year
  Sex: Male
  Weight: 164 kg

DRUGS (13)
  1. REVLIMID [Suspect]
     Indication: PLASMA CELL MYELOMA
     Route: 048
     Dates: start: 20080121
  2. PROCHLORPERAZINE (PROCHLORPERAZINE) [Concomitant]
  3. NEXIUM (ESOMEPRAZOLE) (CAPSULES) [Concomitant]
  4. HYDROCODONE/APAP (VICODIN) (TABLETS) [Concomitant]
  5. MORPHINE SULFATE (MORPHINE SULFATE) (TABLETS) [Concomitant]
  6. AMLODIPINE BESYLATE (AMLODIPINE BESILATE) (TABLETS) [Concomitant]
  7. ONDASETRON (ONDANSETRON) (TABLETS) [Concomitant]
  8. ACYCLOVIR (ACICLOVIR) (TABLETS) [Concomitant]
  9. PROPRANOLOL (PROPRANOLOL) (TABLETS) [Concomitant]
  10. NYSTATIN (NYSTATIN) (TABLETS) [Concomitant]
  11. NEPRELAN (NAPROXEN SODIUM) [Concomitant]
  12. FLUOXETINE (FLUOXETINE) (TABLETS) [Concomitant]
  13. DEXAMETHASONE (DEXAMETHASONE) (TABLETS) [Concomitant]

REACTIONS (1)
  - Thrombosis [None]
